FAERS Safety Report 10082356 (Version 3)
Quarter: 2014Q2

REPORT INFORMATION
  Report Type: Report from Study
  Country: UG (occurrence: UG)
  Receive Date: 20140416
  Receipt Date: 20140512
  Transmission Date: 20141212
  Serious: Yes (Death, Hospitalization, Other)
  Sender: FDA-Public Use
  Company Number: UG-GILEAD-2014-0099528

PATIENT
  Age: 17 Year
  Sex: Female

DRUGS (8)
  1. EMTRICITABINE/TENOFOVIR DISOPROXIL FUMARATE [Suspect]
     Indication: HIV INFECTION
     Dosage: UNK
     Route: 065
     Dates: start: 20140221, end: 20140315
  2. EFAVIRENZ [Suspect]
     Indication: HIV INFECTION
     Dosage: UNK
     Route: 065
     Dates: start: 20140221, end: 20140314
  3. CO-TRIMOXAZOLE [Suspect]
     Indication: HIV INFECTION
     Dosage: UNK
     Route: 065
     Dates: start: 20140213, end: 20140315
  4. ISONIAZID [Suspect]
     Indication: HIV INFECTION
     Dosage: UNK
     Route: 065
     Dates: start: 20140221, end: 20140315
  5. PYRIDOXINE [Suspect]
     Indication: HIV INFECTION
     Dosage: UNK
     Route: 065
     Dates: start: 20140221, end: 20140315
  6. FLUCONAZOLE [Suspect]
     Indication: HIV INFECTION
     Dosage: UNK
     Route: 065
     Dates: start: 20140221, end: 20140315
  7. ALBENDAZOLE [Concomitant]
     Dosage: UNK
     Dates: start: 20140221, end: 20140221
  8. AZITHROMYCIN [Concomitant]
     Dosage: UNK
     Dates: start: 20140221, end: 20140225

REACTIONS (2)
  - Anaemia [Not Recovered/Not Resolved]
  - Death [Fatal]
